FAERS Safety Report 4267676-3 (Version None)
Quarter: 2004Q1

REPORT INFORMATION
  Report Type: 
  Country: None (occurrence: None)
  Receive Date: 20040109
  Receipt Date: 20040102
  Transmission Date: 20041129
  Serious: Yes (Hospitalization)
  Sender: FDA-Public Use
  Company Number: PHNU2004DE00452

PATIENT
  Age: 33 Year
  Sex: Female

DRUGS (1)
  1. SANDIMMUNE [Suspect]
     Indication: BONE MARROW TRANSPLANT
     Dates: start: 20030101

REACTIONS (2)
  - GASTROINTESTINAL NECROSIS [None]
  - INTESTINAL RESECTION [None]
